FAERS Safety Report 8157562-0 (Version None)
Quarter: 2012Q1

REPORT INFORMATION
  Report Type: 
  Country: None (occurrence: None)
  Receive Date: 20120222
  Receipt Date: 20111220
  Transmission Date: 20120608
  Serious: No
  Sender: FDA-Public Use
  Company Number: US-ASTRAZENECA-2011SE77503

PATIENT

DRUGS (4)
  1. ZOLPIDEM [Concomitant]
  2. DICLOFENAC SODIUM [Concomitant]
  3. ATENOLOL [Suspect]
     Route: 048
  4. PRILOSEC OTC [Suspect]
     Route: 048

REACTIONS (5)
  - OSTEOARTHRITIS [None]
  - GASTROOESOPHAGEAL REFLUX DISEASE [None]
  - SLEEP DISORDER [None]
  - ARTHRALGIA [None]
  - HYPERTENSION [None]
